FAERS Safety Report 17787757 (Version 1)
Quarter: 2020Q2

REPORT INFORMATION
  Report Type: Report from Study
  Country: KR (occurrence: KR)
  Receive Date: 20200514
  Receipt Date: 20200514
  Transmission Date: 20200714
  Serious: Yes (Hospitalization, Other)
  Sender: FDA-Public Use
  Company Number: KR-TAKEDA-2020TUS022312

PATIENT
  Age: 74 Year
  Sex: Female

DRUGS (3)
  1. VORTIOXETINE. [Suspect]
     Active Substance: VORTIOXETINE
     Indication: MAJOR DEPRESSION
     Dosage: 5 MILLIGRAM, QD
     Route: 048
     Dates: start: 20200319, end: 20200415
  2. LAFUTIDINE [Concomitant]
     Active Substance: LAFUTIDINE
     Indication: NAUSEA
     Dosage: 10 MILLIGRAM, BID
     Route: 048
     Dates: start: 20200319
  3. CHOLINE ALFOSCERATE [Concomitant]
     Active Substance: CHOLINE ALFOSCERATE
     Indication: COGNITIVE DISORDER
     Dosage: 400 MILLIGRAM, BID
     Route: 048
     Dates: start: 20200319

REACTIONS (1)
  - Ovarian cancer [Not Recovered/Not Resolved]

NARRATIVE: CASE EVENT DATE: 20200407
